FAERS Safety Report 9688583 (Version 1)
Quarter: 2013Q4

REPORT INFORMATION
  Report Type: Spontaneous
  Country: US (occurrence: US)
  Receive Date: 20131114
  Receipt Date: 20131114
  Transmission Date: 20140711
  Serious: No
  Sender: FDA-Public Use
  Company Number: US-PFIZER INC-2013323826

PATIENT
  Sex: Female

DRUGS (4)
  1. VENLAFAXINE HCL [Suspect]
     Indication: DEPRESSION
     Dosage: 300 MG, DAILY
  2. VENLAFAXINE HCL [Suspect]
     Indication: ANXIETY
  3. VENLAFAXINE [Suspect]
     Indication: ANXIETY
     Dosage: 450 MG, DAILY
  4. VENLAFAXINE [Suspect]
     Indication: DEPRESSION

REACTIONS (1)
  - Hepatic enzyme increased [Unknown]
